FAERS Safety Report 18368108 (Version 1)
Quarter: 2020Q4

REPORT INFORMATION
  Report Type: Report from Study
  Country: CH (occurrence: CH)
  Receive Date: 20201009
  Receipt Date: 20201009
  Transmission Date: 20210114
  Serious: Yes (Hospitalization)
  Sender: FDA-Public Use
  Company Number: CH-TAKEDA-2020TUS041823

PATIENT
  Age: 28 Year
  Sex: Male
  Weight: 60 kg

DRUGS (7)
  1. SYMBICORT [Concomitant]
     Active Substance: BUDESONIDE\FORMOTEROL FUMARATE DIHYDRATE
     Indication: PRODUCT USED FOR UNKNOWN INDICATION
     Dosage: UNK
     Route: 065
  2. VORTIOXETINE. [Suspect]
     Active Substance: VORTIOXETINE
     Dosage: 3 MILLIGRAM, QD
     Route: 065
  3. VORTIOXETINE. [Suspect]
     Active Substance: VORTIOXETINE
     Dosage: 20 MILLIGRAM, QD
     Route: 065
  4. VORTIOXETINE. [Suspect]
     Active Substance: VORTIOXETINE
     Dosage: 10 MILLIGRAM, QD
     Route: 065
  5. VENTOLIN [Concomitant]
     Active Substance: ALBUTEROL SULFATE
     Indication: PRODUCT USED FOR UNKNOWN INDICATION
     Dosage: 100 MICROGRAM
     Route: 065
  6. DEMETRIN [Concomitant]
     Active Substance: PRAZEPAM
     Indication: PRODUCT USED FOR UNKNOWN INDICATION
     Dosage: UNK
     Route: 065
     Dates: start: 202005, end: 202006
  7. VORTIOXETINE. [Suspect]
     Active Substance: VORTIOXETINE
     Indication: DEPRESSION
     Dosage: 1 MILLIGRAM, QD
     Route: 065
     Dates: start: 20191107

REACTIONS (5)
  - Skin reaction [Unknown]
  - Underdose [Unknown]
  - Nausea [Unknown]
  - Wrong technique in product usage process [Unknown]
  - Depression [Unknown]

NARRATIVE: CASE EVENT DATE: 202005
